FAERS Safety Report 4803064-6 (Version None)
Quarter: 2005Q4

REPORT INFORMATION
  Report Type: 
  Country: None (occurrence: None)
  Receive Date: 20051019
  Receipt Date: 20051017
  Transmission Date: 20060501
  Serious: Yes (Death)
  Sender: FDA-Public Use
  Company Number: J200502802

PATIENT
  Age: 79 Year
  Sex: Female

DRUGS (1)
  1. SAWACILLIN [Suspect]
     Indication: DRUG USE FOR UNKNOWN INDICATION
     Dosage: 1500MG PER DAY
     Route: 048
     Dates: start: 20040608

REACTIONS (1)
  - THROMBOTIC THROMBOCYTOPENIC PURPURA [None]
